FAERS Safety Report 6696345-5 (Version None)
Quarter: 2010Q2

REPORT INFORMATION
  Report Type: 
  Country: None (occurrence: None)
  Receive Date: 20100426
  Receipt Date: 20100415
  Transmission Date: 20101027
  Serious: Yes (Hospitalization)
  Sender: FDA-Public Use
  Company Number: CA-JNJFOC-20100405463

PATIENT
  Sex: Male
  Weight: 156 kg

DRUGS (4)
  1. REMICADE [Suspect]
     Indication: PSORIASIS
     Dosage: HAS RECEIVED 14 INFUSIONS
     Route: 042
  2. ACCUPRIL [Concomitant]
  3. ALLOPURINOL [Concomitant]
  4. VERAPAMIL [Concomitant]

REACTIONS (3)
  - CHEST DISCOMFORT [None]
  - DYSPNOEA [None]
  - SWOLLEN TONGUE [None]
